FAERS Safety Report 13372239 (Version 1)
Quarter: 2017Q1

REPORT INFORMATION
  Report Type: Spontaneous
  Country: US (occurrence: US)
  Receive Date: 20170327
  Receipt Date: 20170327
  Transmission Date: 20170429
  Serious: No
  Sender: FDA-Public Use
  Company Number: US-INTERPRAG-PM-OCA2016-00333

PATIENT

DRUGS (4)
  1. LOSARTAN POTASSIUM. [Concomitant]
     Active Substance: LOSARTAN POTASSIUM
  2. OCALIVA [Suspect]
     Active Substance: OBETICHOLIC ACID
     Indication: BILIARY CIRRHOSIS PRIMARY
     Dosage: 5 MG, QD
     Route: 048
     Dates: start: 20161103
  3. AUGMENTIN [Suspect]
     Active Substance: AMOXICILLIN\CLAVULANATE POTASSIUM
     Dosage: UNK, UNKNOWN
     Dates: start: 2016, end: 2016
  4. URSODIOL. [Concomitant]
     Active Substance: URSODIOL

REACTIONS (6)
  - Urinary sediment present [Unknown]
  - Vomiting [Unknown]
  - Malaise [Unknown]
  - White blood cells urine positive [Unknown]
  - Diarrhoea [Unknown]
  - Bacterial test positive [Unknown]

NARRATIVE: CASE EVENT DATE: 201612
